FAERS Safety Report 11215715 (Version 1)
Quarter: 2015Q2

REPORT INFORMATION
  Report Type: Spontaneous
  Country: DE (occurrence: DE)
  Receive Date: 20150624
  Receipt Date: 20150624
  Transmission Date: 20150821
  Serious: Yes (Hospitalization)
  Sender: FDA-Public Use
  Company Number: DE-009507513-1506DEU009117

PATIENT
  Sex: Female

DRUGS (4)
  1. LOSARTAN POTASSIUM. [Suspect]
     Active Substance: LOSARTAN POTASSIUM
     Dosage: 25MG MILIGRAM(S), 2 IN 1 DAY
  2. TELMISARTAN. [Suspect]
     Active Substance: TELMISARTAN
     Dosage: 40 MG MILIGRAM(S), 1 IN 1 DAY
  3. VALSARTAN. [Suspect]
     Active Substance: VALSARTAN
     Dosage: 80 MG MILIGRAM(S), 2 IN 1 DAY
  4. CANDESARTAN CILEXETIL. [Suspect]
     Active Substance: CANDESARTAN CILEXETIL
     Dosage: 4MG MILIGRAM(S), 2 IN 1 DAY

REACTIONS (3)
  - Abdominal pain [Recovering/Resolving]
  - Faeces soft [Recovering/Resolving]
  - Faecal incontinence [Recovering/Resolving]
